FAERS Safety Report 4452129-X (Version None)
Quarter: 2004Q3

REPORT INFORMATION
  Report Type: 
  Country: None (occurrence: None)
  Receive Date: 20040917
  Receipt Date: 20040906
  Transmission Date: 20050211
  Serious: Yes (Death)
  Sender: FDA-Public Use
  Company Number: GB-JNJFOC-20040605198

PATIENT
  Age: 89 Year
  Sex: Male

DRUGS (1)
  1. REMINLY [Suspect]
     Route: 049

REACTIONS (5)
  - BLOOD PRESSURE SYSTOLIC INCREASED [None]
  - BRONCHOPNEUMONIA [None]
  - CEREBROVASCULAR ACCIDENT [None]
  - IMMOBILE [None]
  - SUDDEN DEATH [None]
